FAERS Safety Report 9281889 (Version 1)
Quarter: 2013Q2

REPORT INFORMATION
  Report Type: Report from Study
  Country: ES (occurrence: ES)
  Receive Date: 20130510
  Receipt Date: 20130510
  Transmission Date: 20140414
  Serious: Yes (Other)
  Sender: FDA-Public Use
  Company Number: ES-ROCHE-1222544

PATIENT
  Age: 22 Year
  Sex: Male

DRUGS (3)
  1. CELLCEPT [Suspect]
     Indication: HEART TRANSPLANT
     Route: 065
  2. TACROLIMUS [Suspect]
     Indication: HEART TRANSPLANT
     Route: 065
  3. PREDNISONE [Suspect]
     Indication: HEART TRANSPLANT
     Route: 065

REACTIONS (4)
  - Atrial flutter [Unknown]
  - Pneumonia chlamydial [Unknown]
  - Transplant rejection [Recovered/Resolved]
  - Transplant rejection [Recovered/Resolved]
